FAERS Safety Report 7784889-4 (Version None)
Quarter: 2011Q3

REPORT INFORMATION
  Report Type: 
  Country: None (occurrence: None)
  Receive Date: 20110928
  Receipt Date: 20110923
  Transmission Date: 20111222
  Serious: Yes (Life-Threatening, Hospitalization)
  Sender: FDA-Public Use
  Company Number: US-BAYER-2011-020481

PATIENT
  Age: 39 Year
  Sex: Female
  Weight: 70 kg

DRUGS (6)
  1. ABILIFY [Concomitant]
     Indication: BIPOLAR I DISORDER
     Dosage: UNK
     Dates: start: 20020101, end: 20110101
  2. SEROQUEL [Concomitant]
     Indication: BIPOLAR I DISORDER
     Dosage: 100 MG, QD
     Dates: start: 20020101, end: 20110101
  3. LITHIUM [Concomitant]
     Indication: BIPOLAR I DISORDER
     Dosage: 300 MG, QD
     Dates: start: 20020101, end: 20110101
  4. YAZ [Suspect]
     Indication: CONTRACEPTION
     Dosage: UNK
     Route: 048
     Dates: start: 20061001, end: 20070601
  5. DEPAKOTE [Concomitant]
     Indication: BIPOLAR I DISORDER
     Dosage: 250 MG, QD
     Dates: start: 20020101, end: 20110101
  6. LAMICTAL [Concomitant]
     Indication: BIPOLAR I DISORDER
     Dosage: UNK
     Dates: start: 20020101, end: 20110101

REACTIONS (4)
  - PAIN [None]
  - GALLBLADDER DISORDER [None]
  - CHOLECYSTITIS ACUTE [None]
  - BILE DUCT STONE [None]
